FAERS Safety Report 7905981-7 (Version None)
Quarter: 2011Q4

REPORT INFORMATION
  Report Type: 
  Country: None (occurrence: None)
  Receive Date: 20111110
  Receipt Date: 20111028
  Transmission Date: 20120403
  Serious: Yes (Other)
  Sender: FDA-Public Use
  Company Number: JP-UCBSA-040214

PATIENT
  Age: 33 Year
  Sex: Male
  Weight: 59.8 kg

DRUGS (12)
  1. GASMOTIN [Concomitant]
     Indication: VOMITING
     Dosage: DAILY DOSE: 15 MG
     Route: 048
     Dates: start: 20110121
  2. KEPPRA [Suspect]
     Indication: EPILEPSY
     Route: 048
     Dates: start: 20110808, end: 20110812
  3. ZONISAMIDE [Concomitant]
     Indication: EPILEPSY
     Dosage: DAILY DOSE: 100 MG
     Route: 048
  4. TEGRETOL [Interacting]
     Indication: EPILEPSY
     Dosage: DAILY DOSE: 500 MG (DECREASING DOSE)
     Route: 048
     Dates: start: 20110817
  5. TEGRETOL [Interacting]
     Dosage: DAILY DOSE: 200 MG
     Route: 048
     Dates: end: 20110812
  6. DEPAKENE [Concomitant]
     Indication: EPILEPSY
     Dosage: DAILY DOSE: 1400 MG
     Route: 048
  7. VALPROATE SODIUM [Concomitant]
     Indication: EPILEPSY
     Dosage: DAILY DOSE: 400 MG
     Route: 048
  8. TEGRETOL [Interacting]
     Dosage: TOTAL DAILY DOSE: 0.4 G
     Route: 048
     Dates: start: 20100430
  9. PURSENNID [Concomitant]
     Indication: CONSTIPATION
     Dosage: DAILY DOSE: 24 MG
     Route: 048
  10. TEGRETOL [Interacting]
     Dosage: DAILY DOSE: UNKNOWN
     Route: 048
     Dates: start: 20110814, end: 20110816
  11. LANSOPRAZOLE [Concomitant]
     Indication: GASTROOESOPHAGEAL REFLUX DISEASE
     Dosage: DAILY DOSE: 15 MG
     Route: 048
     Dates: start: 20110121
  12. VALPROATE SODIUM [Concomitant]
     Dosage: TOTAL DAILY DOSE: 1 G
     Route: 048
     Dates: start: 20100430

REACTIONS (2)
  - ALTERED STATE OF CONSCIOUSNESS [None]
  - DRUG INTERACTION [None]
